FAERS Safety Report 14794732 (Version 1)
Quarter: 2018Q2

REPORT INFORMATION
  Report Type: Spontaneous
  Country: US (occurrence: US)
  Receive Date: 20180423
  Receipt Date: 20180423
  Transmission Date: 20180711
  Serious: No
  Sender: FDA-Public Use
  Company Number: US-009507513-1804USA008917

PATIENT
  Sex: Male

DRUGS (4)
  1. HYDROCORTISONE. [Concomitant]
     Active Substance: HYDROCORTISONE
     Dosage: 1 TAB ORALLY DAILY
     Route: 048
     Dates: start: 20171102
  2. SYNTHROID [Concomitant]
     Active Substance: LEVOTHYROXINE SODIUM
     Dosage: 1 TAB ORALLY DAILY
     Route: 048
     Dates: start: 20171102
  3. DDAVP [Concomitant]
     Active Substance: DESMOPRESSIN ACETATE
     Dosage: 1 SPRAY TWICE A DAY
     Dates: start: 20171102
  4. PREGNYL [Suspect]
     Active Substance: CHORIOGONADOTROPIN ALFA
     Indication: INFERTILITY
     Dosage: 10000 UNIT / 3000 USP UNITS EVERY OTHER DAY
     Dates: start: 20170921

REACTIONS (1)
  - Drug dose omission [Unknown]
